FAERS Safety Report 8596241-2 (Version None)
Quarter: 2012Q3

REPORT INFORMATION
  Report Type: 
  Country: None (occurrence: None)
  Receive Date: 20120815
  Receipt Date: 20120810
  Transmission Date: 20120928
  Serious: Yes (Hospitalization)
  Sender: FDA-Public Use
  Company Number: PHEH2011US011640

PATIENT
  Sex: Female

DRUGS (6)
  1. MICROLAX [Concomitant]
     Dosage: UNK UKN, I CUP FULL IN WATER DAILY
     Route: 048
     Dates: start: 20100702
  2. COLACE [Concomitant]
     Dosage: 100 MG, DAILY
     Route: 048
  3. MULTIVITAMIN [Concomitant]
     Dosage: 1 DFDAILY
     Route: 048
  4. EXJADE [Suspect]
     Indication: IRON OVERLOAD
     Dosage: 1250 MG, DAILY
     Route: 048
     Dates: start: 20110405
  5. CELEXA [Concomitant]
     Dosage: 1 DF DAILY
     Route: 048
     Dates: start: 20120120
  6. PROTRAX [Concomitant]
     Dosage: 40 MG DAILY
     Route: 048
     Dates: start: 20111220

REACTIONS (4)
  - FEMUR FRACTURE [None]
  - TREMOR [None]
  - FALL [None]
  - PAIN IN EXTREMITY [None]
